FAERS Safety Report 8123880-5 (Version None)
Quarter: 2012Q1

REPORT INFORMATION
  Report Type: 
  Country: None (occurrence: None)
  Receive Date: 20120209
  Receipt Date: 20120131
  Transmission Date: 20120608
  Serious: Yes (Other)
  Sender: FDA-Public Use
  Company Number: IN-BIOGENIDEC-2012BI003914

PATIENT
  Sex: Male

DRUGS (1)
  1. AVONEX [Suspect]
     Indication: PRODUCT USED FOR UNKNOWN INDICATION
     Route: 030
     Dates: start: 20100101

REACTIONS (3)
  - MULTIPLE SCLEROSIS RELAPSE [None]
  - WEIGHT BEARING DIFFICULTY [None]
  - MULTIPLE SCLEROSIS [None]
